FAERS Safety Report 22803137 (Version 2)
Quarter: 2023Q4

REPORT INFORMATION
  Report Type: Spontaneous
  Country: JP (occurrence: JP)
  Receive Date: 20230809
  Receipt Date: 20231004
  Transmission Date: 20240109
  Serious: Yes (Other)
  Sender: FDA-Public Use
  Company Number: JP-BAYER-2023A109345

PATIENT
  Age: 9 Decade
  Sex: Female

DRUGS (3)
  1. EYLEA [Suspect]
     Active Substance: AFLIBERCEPT
     Indication: Age-related macular degeneration
     Dosage: LEFT EYE, 1ST TIME, SOLUTION FOR INJECTION, 40 MG/ML
     Route: 031
  2. EYLEA [Suspect]
     Active Substance: AFLIBERCEPT
     Dosage: LEFT EYE, 2ND TIME, SOLUTION FOR INJECTION, 40MG/ML
     Route: 031
     Dates: start: 20230630, end: 20230630
  3. EYLEA [Suspect]
     Active Substance: AFLIBERCEPT
     Dosage: ADMINISTRATION EYE UNKNOWN, 3RD TIME, SOLUTION FOR INJECTION, 40 MG/ML
     Route: 031
     Dates: start: 20230728, end: 20230728

REACTIONS (5)
  - Retinal vascular disorder [Recovered/Resolved]
  - Retinitis [Recovered/Resolved]
  - Vitritis [Recovering/Resolving]
  - Vitreous opacities [Unknown]
  - Vision blurred [Recovered/Resolved]

NARRATIVE: CASE EVENT DATE: 20230101
